FAERS Safety Report 8013594-4 (Version None)
Quarter: 2011Q4

REPORT INFORMATION
  Report Type: 
  Country: None (occurrence: None)
  Receive Date: 20111229
  Receipt Date: 20111226
  Transmission Date: 20120403
  Serious: Yes (Death)
  Sender: FDA-Public Use
  Company Number: BR-B.I. PHARMACEUTICALS,INC./RIDGEFIELD-2011-BR-01430BR

PATIENT
  Age: 80 Year
  Sex: Male

DRUGS (2)
  1. TAMSULOSIN HYDROCHLORIDE [Suspect]
     Indication: PROSTATIC DISORDER
     Dates: end: 20111122
  2. MEDICATIONS NOT FURTHER SPECIFIED [Concomitant]

REACTIONS (1)
  - MULTI-ORGAN FAILURE [None]
